FAERS Safety Report 18930597 (Version 2)
Quarter: 2022Q1

REPORT INFORMATION
  Report Type: Spontaneous
  Country: FR (occurrence: FR)
  Receive Date: 20210224
  Receipt Date: 20220204
  Transmission Date: 20220424
  Serious: Yes (Hospitalization)
  Sender: FDA-Public Use
  Company Number: FR-AFSSAPS-CN20210204

PATIENT
  Age: 83 Year
  Sex: Male

DRUGS (13)
  1. ATORVASTATIN [Interacting]
     Active Substance: ATORVASTATIN
     Indication: Dyslipidaemia
     Dosage: 40 MILLIGRAM, DAILY, 0-0-1
     Route: 048
     Dates: start: 201703
  2. AZITHROMYCIN [Suspect]
     Active Substance: AZITHROMYCIN
     Indication: Bacterial colitis
     Dosage: 250 MILLIGRAM, DAILY
     Route: 048
     Dates: start: 20210125, end: 20210127
  3. AZITHROMYCIN [Suspect]
     Active Substance: AZITHROMYCIN
     Dosage: 250 MILLIGRAM
     Route: 048
     Dates: start: 20210130, end: 20210201
  4. CIPROFLOXACIN [Suspect]
     Active Substance: CIPROFLOXACIN
     Indication: Bacterial colitis
     Dosage: 1000 MILLIGRAM, DAILY
     Route: 048
     Dates: start: 20210125, end: 20210125
  5. FENOFIBRATE [Concomitant]
     Active Substance: FENOFIBRATE
     Indication: Dyslipidaemia
     Dosage: 145 MILLIGRAM, DAILY
     Route: 048
     Dates: start: 20170301
  6. FLUINDIONE [Concomitant]
     Active Substance: FLUINDIONE
     Indication: Thrombosis prophylaxis
     Dosage: 10 MILLIGRAM, DAILY, 0-0-1/2
     Route: 048
     Dates: start: 20170301
  7. ZOLOFT [Concomitant]
     Active Substance: SERTRALINE HYDROCHLORIDE
     Indication: Depression
     Dosage: 50 MILLIGRAM, DAILY, 1-0-0
     Route: 048
     Dates: start: 20170301
  8. OXAZEPAM [Concomitant]
     Active Substance: OXAZEPAM
     Indication: Anxiety
     Dosage: 10 MILLIGRAM, DAILY, 0-0-1
     Route: 048
     Dates: start: 20170301
  9. INIPOMP [Concomitant]
     Active Substance: PANTOPRAZOLE SODIUM
     Indication: Gastric ulcer
     Dosage: 20 MILLIGRAM, DAILY
     Route: 048
     Dates: start: 20170301
  10. RYTHMODAN 250 mg A LIBERATION PROLONGEE, comprime enrobe [Concomitant]
     Indication: Hypertension
     Dosage: 500 MILLIGRAM, DAILY, 1-0-1
     Route: 048
     Dates: start: 20170301
  11. KARDEGIC [Concomitant]
     Active Substance: ASPIRIN DL-LYSINE
     Indication: Cerebrovascular accident prophylaxis
     Dosage: 75 MILLIGRAM, DAILY
     Route: 048
     Dates: start: 20180501
  12. METFORMIN HYDROCHLORIDE [Concomitant]
     Active Substance: METFORMIN HYDROCHLORIDE
     Indication: Type 2 diabetes mellitus
     Dosage: 1000 MILLIGRAM, DAILY, 1-0-1
     Route: 048
     Dates: start: 20170301
  13. ESIDREX [Concomitant]
     Active Substance: HYDROCHLOROTHIAZIDE
     Indication: Hypertension
     Dosage: 25 MILLIGRAM, DAILY, 1-0-0
     Route: 048
     Dates: start: 20180501, end: 20210126

REACTIONS (1)
  - Pancreatitis acute [Recovered/Resolved]

NARRATIVE: CASE EVENT DATE: 20210130
